FAERS Safety Report 7683943-5 (Version None)
Quarter: 2011Q3

REPORT INFORMATION
  Report Type: 
  Country: None (occurrence: None)
  Receive Date: 20110815
  Receipt Date: 20110808
  Transmission Date: 20111222
  Serious: Yes (Other)
  Sender: FDA-Public Use
  Company Number: PHHY2011AR71417

PATIENT
  Age: 82 Year
  Sex: Male

DRUGS (2)
  1. DIOVAN [Suspect]
     Indication: HYPERTENSION
     Dosage: 80 MG, DAILY
     Dates: start: 20101201
  2. DIOVAN [Suspect]
     Dosage: 160 MG, DAILY

REACTIONS (1)
  - HYPERTENSIVE CRISIS [None]
